FAERS Safety Report 7354450-4 (Version None)
Quarter: 2011Q1

REPORT INFORMATION
  Report Type: 
  Country: None (occurrence: None)
  Receive Date: 20110316
  Receipt Date: 20110301
  Transmission Date: 20110831
  Serious: Yes (Disabling, Other)
  Sender: FDA-Public Use
  Company Number: US-BAYER-201031065NA

PATIENT
  Sex: Female

DRUGS (3)
  1. YAZ [Suspect]
     Indication: ORAL CONTRACEPTION
  2. YASMIN [Suspect]
     Indication: PRODUCT USED FOR UNKNOWN INDICATION
  3. YAZ [Suspect]
     Indication: MENSTRUATION IRREGULAR
     Dosage: SHE TOOK YAZ UNTIL THE SPRING OF 2008
     Route: 048
     Dates: start: 20071101, end: 20080101

REACTIONS (5)
  - PARANOIA [None]
  - ANXIETY [None]
  - DEPRESSION [None]
  - SUICIDE ATTEMPT [None]
  - AGORAPHOBIA [None]
